FAERS Safety Report 25363419 (Version 1)
Quarter: 2025Q2

REPORT INFORMATION
  Report Type: Spontaneous
  Country: GB (occurrence: GB)
  Receive Date: 20250527
  Receipt Date: 20250527
  Transmission Date: 20250717
  Serious: Yes (Death, Other)
  Sender: B BRAUN
  Company Number: GB-B.Braun Medical Inc.-2177525

PATIENT
  Sex: Male

DRUGS (3)
  1. ACETAMINOPHEN [Suspect]
     Active Substance: ACETAMINOPHEN
  2. COCAINE [Suspect]
     Active Substance: COCAINE
  3. ALCOHOL [Suspect]
     Active Substance: ALCOHOL

REACTIONS (2)
  - Hanging [Fatal]
  - Completed suicide [Fatal]
